FAERS Safety Report 24242215 (Version 1)
Quarter: 2024Q3

REPORT INFORMATION
  Report Type: Spontaneous
  Country: CN (occurrence: CN)
  Receive Date: 20240823
  Receipt Date: 20240823
  Transmission Date: 20241016
  Serious: No
  Sender: BLUEPRINT MEDICINES
  Company Number: CN-CSTONE PHARMACEUTICALS (SUZHOU) CO., LTD.-2024CN01038

PATIENT
  Age: 30 Year
  Sex: Male

DRUGS (3)
  1. AYVAKIT [Suspect]
     Active Substance: AVAPRITINIB
     Indication: Mastocytosis
     Dosage: 100 MILLIGRAM, QD
     Route: 048
     Dates: start: 202110
  2. AYVAKIT [Suspect]
     Active Substance: AVAPRITINIB
     Dosage: 100 MILLIGRAM, QD
     Route: 048
  3. AYVAKIT [Suspect]
     Active Substance: AVAPRITINIB
     Dosage: 200 MILLIGRAM, QD
     Route: 048
     Dates: start: 20240704

REACTIONS (2)
  - Neoplasm recurrence [Unknown]
  - Off label use [Unknown]

NARRATIVE: CASE EVENT DATE: 20211001
